FAERS Safety Report 4854436-5 (Version None)
Quarter: 2005Q4

REPORT INFORMATION
  Report Type: 
  Country: None (occurrence: None)
  Receive Date: 20051213
  Receipt Date: 20051130
  Transmission Date: 20060501
  Serious: Yes (Hospitalization)
  Sender: FDA-Public Use
  Company Number: NZ200511001120

PATIENT
  Age: 31 Year
  Sex: Male

DRUGS (2)
  1. ZYPREXA [Suspect]
  2. LORAZEPAM [Concomitant]

REACTIONS (5)
  - FEEDING DISORDER [None]
  - FLUID INTAKE REDUCED [None]
  - IMPAIRED SELF-CARE [None]
  - MENTAL DISORDER [None]
  - PNEUMONIA [None]
